FAERS Safety Report 12184106 (Version 1)
Quarter: 2016Q1

REPORT INFORMATION
  Report Type: Spontaneous
  Country: MW (occurrence: MW)
  Receive Date: 20160316
  Receipt Date: 20160316
  Transmission Date: 20160526
  Serious: Yes (Other)
  Sender: FDA-Public Use
  Company Number: MW-JNJFOC-20160311824

PATIENT

DRUGS (4)
  1. VINCRISTINE [Suspect]
     Active Substance: VINCRISTINE
     Indication: NON-HODGKIN^S LYMPHOMA
     Dosage: (MAXIMUM 2 MG) DAY 1
     Route: 065
  2. DOXORUBICIN [Suspect]
     Active Substance: DOXORUBICIN
     Indication: NON-HODGKIN^S LYMPHOMA
     Dosage: DAY 1
     Route: 042
  3. CYCLOPHOSPHAMIDE. [Suspect]
     Active Substance: CYCLOPHOSPHAMIDE
     Indication: NON-HODGKIN^S LYMPHOMA
     Dosage: DAY 1
     Route: 065
  4. PREDNISOLONE. [Suspect]
     Active Substance: PREDNISOLONE
     Indication: NON-HODGKIN^S LYMPHOMA
     Dosage: (MAXIMUM 100 MG) DAYS 1-5.
     Route: 065

REACTIONS (12)
  - Dehydration [Unknown]
  - Hepatitis [Unknown]
  - Thrombocytopenia [Unknown]
  - Abdominal pain [Unknown]
  - Brain oedema [Unknown]
  - Renal failure [Unknown]
  - Skin infection [Unknown]
  - Small intestinal obstruction [Unknown]
  - Neutropenia [Unknown]
  - Anaemia [Unknown]
  - Sepsis [Unknown]
  - Diarrhoea [Unknown]
